FAERS Safety Report 6443321-3 (Version None)
Quarter: 2009Q4

REPORT INFORMATION
  Report Type: 
  Country: None (occurrence: None)
  Receive Date: 20091112
  Receipt Date: 20091102
  Transmission Date: 20100525
  Serious: Yes (Death)
  Sender: FDA-Public Use
  Company Number: ADR47182009

PATIENT
  Age: 79 Year
  Sex: Male

DRUGS (12)
  1. SIMVASTATIN [Suspect]
     Indication: BLOOD CHOLESTEROL INCREASED
     Dosage: 20MG, ORAL
     Route: 048
  2. CHLORPHENIRAMINE [Concomitant]
  3. QUININE SULPHATE [Concomitant]
  4. TIGECYCLINE [Concomitant]
  5. ASPIRIN [Concomitant]
  6. CIPROFLOXACIN [Concomitant]
  7. AMOXICILLIN AND CLAVULANATE POTASSIUM [Concomitant]
  8. FOLIC ACID [Concomitant]
  9. FRAGMIN [Concomitant]
  10. LANSOPRAZOLE [Concomitant]
  11. LEVOTHYROXINE [Concomitant]
  12. MORPHINE SULFATE [Concomitant]

REACTIONS (3)
  - ALANINE AMINOTRANSFERASE INCREASED [None]
  - BLOOD ALKALINE PHOSPHATASE INCREASED [None]
  - BLOOD BILIRUBIN INCREASED [None]
